FAERS Safety Report 22124082 (Version 1)
Quarter: 2023Q1

REPORT INFORMATION
  Report Type: Spontaneous
  Country: GB (occurrence: GB)
  Receive Date: 20230322
  Receipt Date: 20230322
  Transmission Date: 20230418
  Serious: Yes (Other)
  Sender: FDA-Public Use
  Company Number: GB-AstraZeneca-2023A060562

PATIENT
  Sex: Female

DRUGS (2)
  1. TAMOXIFEN [Suspect]
     Active Substance: TAMOXIFEN
     Indication: Metastatic neoplasm
     Dosage: 80 MILLIGRAM, BID
     Route: 048
     Dates: start: 202201
  2. CABERGOLINE [Concomitant]
     Active Substance: CABERGOLINE
     Dosage: 2 MILLIGRAM( WEEK)
     Route: 065

REACTIONS (2)
  - Disease progression [Unknown]
  - Alanine aminotransferase increased [Unknown]
